FAERS Safety Report 7684015-6 (Version None)
Quarter: 2011Q3

REPORT INFORMATION
  Report Type: 
  Country: None (occurrence: None)
  Receive Date: 20110815
  Receipt Date: 20110803
  Transmission Date: 20111222
  Serious: Yes (Other)
  Sender: FDA-Public Use
  Company Number: US-BAUSCH-2011BL005181

PATIENT
  Age: 50 None
  Sex: Male

DRUGS (5)
  1. VELCADE [Suspect]
     Indication: MULTIPLE MYELOMA
     Dates: start: 20110411, end: 20110617
  2. DEXAMETHASONE [Suspect]
     Indication: MULTIPLE MYELOMA
  3. CYCLOPHOSPHAMIDE [Concomitant]
     Dates: start: 20090901, end: 20100101
  4. DEXAMETHASONE [Concomitant]
     Dates: start: 20090901, end: 20100101
  5. THALIDOMIDE [Concomitant]
     Dates: start: 20090901, end: 20100101

REACTIONS (1)
  - DRUG INEFFECTIVE [None]
